FAERS Safety Report 24794617 (Version 1)
Quarter: 2024Q4

REPORT INFORMATION
  Report Type: Report from Study
  Country: KR (occurrence: KR)
  Receive Date: 20241231
  Receipt Date: 20241231
  Transmission Date: 20250115
  Serious: Yes (Hospitalization)
  Sender: NOVARTIS
  Company Number: KR-002147023-NVSC2024KR241160

PATIENT
  Age: 67 Year
  Sex: Male
  Weight: 55.7 kg

DRUGS (24)
  1. BEOVU [Suspect]
     Active Substance: BROLUCIZUMAB-DBLL
     Indication: Neovascular age-related macular degeneration
     Dosage: 6 MG
     Route: 031
     Dates: start: 20231106, end: 20231106
  2. BEOVU [Suspect]
     Active Substance: BROLUCIZUMAB-DBLL
     Dosage: 6 MG
     Route: 031
     Dates: start: 20240229, end: 20240229
  3. BEOVU [Suspect]
     Active Substance: BROLUCIZUMAB-DBLL
     Dosage: 6 MG
     Route: 031
     Dates: start: 20240517, end: 20240517
  4. BEOVU [Suspect]
     Active Substance: BROLUCIZUMAB-DBLL
     Dosage: 6 MG
     Route: 031
     Dates: start: 20240816, end: 20240816
  5. GASTER [Concomitant]
     Active Substance: FAMOTIDINE
     Indication: Gastrointestinal disorder
     Dosage: 1 DOSAGE FORM, TID
     Route: 065
     Dates: start: 20231204, end: 20231210
  6. GATIFLOXACIN [Concomitant]
     Active Substance: GATIFLOXACIN
     Indication: Evidence based treatment
     Dosage: 1 DRP,3 (EYE DROP)
     Route: 065
     Dates: start: 20231106, end: 20231112
  7. GATIFLOXACIN [Concomitant]
     Active Substance: GATIFLOXACIN
     Dosage: 1 DRP,3 (EYE DROP)
     Route: 065
     Dates: start: 20240229, end: 20240306
  8. GATIFLOXACIN [Concomitant]
     Active Substance: GATIFLOXACIN
     Dosage: 1 DRP,3 (EYE DROP)
     Route: 065
     Dates: start: 20240517, end: 20240523
  9. GATIFLOXACIN [Concomitant]
     Active Substance: GATIFLOXACIN
     Dosage: 1 DRP,3 (EYE DROP)
     Route: 065
     Dates: start: 20240816, end: 20240822
  10. MOVELOXIN [Concomitant]
     Indication: Infection prophylaxis
     Dosage: UNK
     Route: 065
     Dates: start: 20231230, end: 20240105
  11. HYALUNI [Concomitant]
     Indication: Dry eye
     Dosage: UNK
     Route: 065
     Dates: start: 20220819
  12. PARACAINE [Concomitant]
     Active Substance: PROPARACAINE HYDROCHLORIDE
     Indication: Induction of anaesthesia
     Dosage: UNK
     Route: 065
     Dates: start: 20231106, end: 20231106
  13. PARACAINE [Concomitant]
     Active Substance: PROPARACAINE HYDROCHLORIDE
     Dosage: UNK
     Route: 065
     Dates: start: 20240229, end: 20240229
  14. PARACAINE [Concomitant]
     Active Substance: PROPARACAINE HYDROCHLORIDE
     Dosage: UNK
     Route: 065
     Dates: start: 20240517, end: 20240517
  15. PARACAINE [Concomitant]
     Active Substance: PROPARACAINE HYDROCHLORIDE
     Dosage: UNK
     Route: 065
     Dates: start: 20240816, end: 20240816
  16. Pretesol [Concomitant]
     Indication: Infection prophylaxis
     Dosage: UNK
     Route: 065
     Dates: start: 20231230, end: 20240131
  17. Tropherin [Concomitant]
     Indication: Mydriasis
     Dosage: UNK
     Route: 065
     Dates: start: 20231106, end: 20231106
  18. Tropherin [Concomitant]
     Dosage: UNK
     Route: 065
     Dates: start: 20231204, end: 20231204
  19. Tropherin [Concomitant]
     Dosage: UNK
     Route: 065
     Dates: start: 20231228, end: 20231228
  20. Tropherin [Concomitant]
     Dosage: UNK
     Route: 065
     Dates: start: 20231230, end: 20231230
  21. Tropherin [Concomitant]
     Dosage: UNK
     Route: 065
     Dates: start: 20240401, end: 20240401
  22. Tropherin [Concomitant]
     Dosage: UNK
     Route: 065
     Dates: start: 20240517, end: 20240517
  23. Tropherin [Concomitant]
     Dosage: UNK
     Route: 065
     Dates: start: 20240614, end: 20240614
  24. Tropherin [Concomitant]
     Dosage: UNK
     Route: 065
     Dates: start: 20240816, end: 20240816

REACTIONS (2)
  - Rhegmatogenous retinal detachment [Recovered/Resolved]
  - Vitreous opacities [Recovered/Resolved]

NARRATIVE: CASE EVENT DATE: 20231204
